FAERS Safety Report 18881724 (Version 2)
Quarter: 2021Q2

REPORT INFORMATION
  Report Type: Report from Study
  Country: US (occurrence: US)
  Receive Date: 20210211
  Receipt Date: 20210525
  Transmission Date: 20210717
  Serious: Yes (Other)
  Sender: FDA-Public Use
  Company Number: US-REGENERON PHARMACEUTICALS, INC.-2021-19759

PATIENT

DRUGS (4)
  1. PREDNISONE. [Concomitant]
     Active Substance: PREDNISONE
     Indication: COVID-19
     Dosage: 20 MG, QD
     Route: 065
  2. BENADRYL [Concomitant]
     Active Substance: DIPHENHYDRAMINE HYDROCHLORIDE
     Indication: RASH PRURITIC
     Dosage: 12.5 MG, SINGLE
     Route: 042
     Dates: start: 20210126, end: 20210126
  3. LORATADINE. [Concomitant]
     Active Substance: LORATADINE
     Indication: RASH PRURITIC
     Dosage: 10 MG, SINGLE
     Route: 048
     Dates: start: 20210126, end: 20210126
  4. CASIRIVIMAB AND IMDEVIMAB [Suspect]
     Active Substance: CASIRIVIMAB\IMDEVIMAB
     Indication: COVID-19
     Dosage: 2400 MG, SINGLE
     Route: 042
     Dates: start: 20210126, end: 20210126

REACTIONS (4)
  - Nausea [Recovering/Resolving]
  - Rash pruritic [Recovered/Resolved]
  - Dizziness [Recovered/Resolved]
  - Rash macular [Recovering/Resolving]

NARRATIVE: CASE EVENT DATE: 20210126
